FAERS Safety Report 4829149-6 (Version None)
Quarter: 2005Q4

REPORT INFORMATION
  Report Type: 
  Country: None (occurrence: None)
  Receive Date: 20051027
  Receipt Date: 20041111
  Transmission Date: 20060501
  Serious: Yes (Hospitalization)
  Sender: FDA-Public Use
  Company Number: USA-2004-0017625

PATIENT
  Age: 57 Year
  Sex: Male

DRUGS (1)
  1. SPECTRACEF [Suspect]
     Indication: SINUSITIS
     Dosage: 200 MG, BID, UNKNOWN
     Route: 065
     Dates: start: 20040913, end: 20040922

REACTIONS (3)
  - ABDOMINAL PAIN [None]
  - CLOSTRIDIUM COLITIS [None]
  - OFF LABEL USE [None]
